FAERS Safety Report 14338323 (Version 5)
Quarter: 2018Q2

REPORT INFORMATION
  Report Type: Spontaneous
  Country: FR (occurrence: FR)
  Receive Date: 20171229
  Receipt Date: 20180529
  Transmission Date: 20180711
  Serious: Yes (Hospitalization, Disabling, Other)
  Sender: FDA-Public Use
  Company Number: FR-MYLANLABS-2017M1083370

PATIENT
  Age: 34 Year
  Sex: Female

DRUGS (16)
  1. LIDOCAINE. [Suspect]
     Active Substance: LIDOCAINE
     Dosage: 300 MG, TOTAL (INJECTION OF 15 ML OF LIDOCAINE 20MG/ML ALONG WITH ADRENALINE)
     Route: 008
  2. SUFENTANIL [Suspect]
     Active Substance: SUFENTANIL
     Indication: EPIDURAL ANALGESIA
     Dosage: 5 G, UNK
     Route: 008
  3. ADRENALINE W/LIDOCAINE [Suspect]
     Active Substance: EPINEPHRINE\LIDOCAINE
     Indication: EPIDURAL ANALGESIA
     Dosage: 300 MG, UNK
     Route: 008
  4. ROPIVACAINE [Suspect]
     Active Substance: ROPIVACAINE
     Indication: ANAESTHESIA
     Dosage: 20 MG, QD, 20 ML OF A SOLUTION OF 1 MG/ML ROPIVACAINE AND 0.25 MUG/ML SUFENTANIL
     Route: 008
  5. ENOXAPARINE SODIQUE [Suspect]
     Active Substance: ENOXAPARIN SODIUM
     Indication: THROMBOSIS PROPHYLAXIS
     Dosage: 40 MG, QD, 40 MG/24 HOUR
     Route: 058
  6. KETOPROFEN. [Suspect]
     Active Substance: KETOPROFEN
     Dosage: 50 MG, QID
     Route: 048
  7. ADRENALINE W/LIDOCAINE [Suspect]
     Active Substance: EPINEPHRINE\LIDOCAINE
     Indication: ANAESTHESIA
     Dosage: 2 MG, QD
     Route: 008
  8. PARACETAMOL [Suspect]
     Active Substance: ACETAMINOPHEN
     Indication: ANALGESIC THERAPY
     Dosage: 4 G, QD
     Route: 048
  9. PARACETAMOL [Suspect]
     Active Substance: ACETAMINOPHEN
     Dosage: 1 G, QD
     Route: 048
  10. ACETYLSALICYLIC ACID [Suspect]
     Active Substance: ASPIRIN
     Indication: PRODUCT USED FOR UNKNOWN INDICATION
     Dosage: UNK
  11. NEFOPAM [Suspect]
     Active Substance: NEFOPAM
     Dosage: 40 MG, QID
     Route: 048
  12. LIDOCAINE. [Suspect]
     Active Substance: LIDOCAINE
     Indication: ANAESTHESIA
     Dosage: 15 ML, TOTAL, 15 ML OF LIDOCAINE 20MG/ML WITH ADRENALIN
     Route: 008
  13. SUFENTANIL [Suspect]
     Active Substance: SUFENTANIL
     Indication: ANAESTHESIA
     Dosage: 5 ?G, UNK  20 ML OF A SOLUTION OF 1 MG/ML ROPIVACAINE AND 0.25 MUG/ML SUFENTANIL
     Route: 008
  14. KETOPROFEN. [Suspect]
     Active Substance: KETOPROFEN
     Indication: ANALGESIC THERAPY
     Dosage: 200 MG, QD
     Route: 048
  15. MORPHINE [Suspect]
     Active Substance: MORPHINE
     Indication: ANALGESIC THERAPY
     Dosage: 2 MG, QID
     Route: 008
  16. NEFOPAM [Suspect]
     Active Substance: NEFOPAM
     Indication: ANALGESIC THERAPY
     Dosage: 160 MG, QD
     Route: 048

REACTIONS (12)
  - Peripheral nerve injury [Recovered/Resolved]
  - Epidural analgesia [Recovering/Resolving]
  - Spinal epidural haemorrhage [Recovered/Resolved]
  - Live birth [Recovered/Resolved]
  - Paraesthesia [Recovered/Resolved]
  - Product use issue [Unknown]
  - Epidural haemorrhage [Recovered/Resolved]
  - Maternal exposure during pregnancy [Recovered/Resolved]
  - Neuropathy peripheral [Recovered/Resolved]
  - Foetal heart rate abnormal [Recovering/Resolving]
  - Gait disturbance [Recovered/Resolved]
  - Epistaxis [Unknown]
